FAERS Safety Report 6010072-9 (Version None)
Quarter: 2008Q4

REPORT INFORMATION
  Report Type: 
  Country: None (occurrence: None)
  Receive Date: 20081216
  Receipt Date: 20081201
  Transmission Date: 20090506
  Serious: Yes (Hospitalization)
  Sender: FDA-Public Use
  Company Number: KV200800649

PATIENT
  Age: 79 Year
  Sex: Male
  Weight: 71.7 kg

DRUGS (9)
  1. ISOSORBIDE MONONITRATE        SLOW RELEASE [Suspect]
     Indication: MYOCARDIAL INFARCTION
     Dosage: 30 MG, QD, ORAL
     Route: 048
     Dates: start: 20080101
  2. GLYBURIDE [Concomitant]
  3. ZYPREXA [Concomitant]
  4. ATENOLOL [Concomitant]
  5. LEVOTHYROXINE [Concomitant]
  6. DIGOXIN [Concomitant]
  7. AVANDIA [Concomitant]
  8. UNSPECIFIED BLOOD PRESSURE MEDICATION [Concomitant]
  9. LIPITOR [Concomitant]

REACTIONS (3)
  - DISORIENTATION [None]
  - OVERDOSE [None]
  - PRODUCT QUALITY ISSUE [None]
